FAERS Safety Report 8375175-2 (Version None)
Quarter: 2012Q2

REPORT INFORMATION
  Report Type: 
  Country: None (occurrence: None)
  Receive Date: 20120521
  Receipt Date: 20120514
  Transmission Date: 20120825
  Serious: Yes (Hospitalization)
  Sender: FDA-Public Use
  Company Number: GXBR2012US001331

PATIENT
  Sex: Female
  Weight: 155 kg

DRUGS (10)
  1. GLIPIZIDE [Concomitant]
     Indication: TYPE 2 DIABETES MELLITUS
     Dosage: 5 MG, TID
     Route: 048
  2. DITROPAN [Concomitant]
     Indication: BLADDER DISORDER
     Dosage: 5 MG, QD
     Route: 048
  3. LEVOTHYROXINE SODIUM [Concomitant]
     Indication: HYPOTHYROIDISM
     Dosage: 100 UG, UNK
  4. NITROFURANTOIN [Suspect]
     Indication: ESCHERICHIA INFECTION
     Dosage: 100 MG, BID
     Route: 048
     Dates: start: 20120512
  5. MULTI-VITAMINS [Concomitant]
     Indication: SUPPLEMENTATION THERAPY
     Dosage: UNK DF, UNK
  6. PHENAZOPYRIDINE HCL TAB [Concomitant]
     Dosage: 20 MG, UNK
  7. DAYPRO [Concomitant]
     Indication: OSTEOPOROSIS
     Dosage: UNK DF, UNK
  8. METFORMIN HCL [Concomitant]
     Indication: TYPE 2 DIABETES MELLITUS
     Dosage: 1000 MG, BID
     Route: 048
  9. CYANOCOBALAMIN [Concomitant]
     Indication: SUPPLEMENTATION THERAPY
     Dosage: UNK DF, UNK
  10. MICROZIDE [Concomitant]
     Indication: FLUID RETENTION
     Dosage: 12.5 MG, UNK

REACTIONS (8)
  - SWOLLEN TONGUE [None]
  - CHEST PAIN [None]
  - CHEST DISCOMFORT [None]
  - TONGUE DISORDER [None]
  - PAROSMIA [None]
  - ABDOMINAL PAIN UPPER [None]
  - RASH ERYTHEMATOUS [None]
  - ORAL DISCOMFORT [None]
